FAERS Safety Report 9672410 (Version 2)
Quarter: 2013Q4

REPORT INFORMATION
  Report Type: Report from Study
  Country: DE (occurrence: DE)
  Receive Date: 20131106
  Receipt Date: 20131106
  Transmission Date: 20140711
  Serious: Yes (Hospitalization)
  Sender: FDA-Public Use
  Company Number: DE-VERTEX PHARMACEUTICALS INC-000000000000000069

PATIENT
  Age: 22 Year
  Sex: Female
  Weight: 67 kg

DRUGS (6)
  1. VX-950 (TELAPREVIR) [Suspect]
     Indication: HEPATITIS C
     Dosage: DOSAGE FORM: TABLET
     Route: 048
     Dates: start: 20111202
  2. COPEGUS [Suspect]
     Indication: HEPATITIS C
     Dosage: DOSAGE FORM: UNKNOWN
     Route: 048
     Dates: start: 20111202
  3. PEGASYS [Suspect]
     Indication: HEPATITIS C
     Dosage: DOSAGE FORM: UNKNOWN
     Route: 058
     Dates: start: 20111202
  4. LEVEMIR [Concomitant]
     Dosage: UNK UNK, QD
     Route: 058
  5. L-THYROXIN [Concomitant]
     Indication: HYPOTHYROIDISM
     Dosage: DOSAGE FORM: UNKNOWN
     Route: 048
  6. NOVORAPID [Concomitant]
     Dosage: DOSAGE FORM: UNKNOWN

REACTIONS (3)
  - Hyperglycaemia [Not Recovered/Not Resolved]
  - Nausea [Unknown]
  - Vomiting [Unknown]
